FAERS Safety Report 7181103-8 (Version None)
Quarter: 2010Q4

REPORT INFORMATION
  Report Type: 
  Country: None (occurrence: None)
  Receive Date: 20101221
  Receipt Date: 20100416
  Transmission Date: 20110411
  Serious: No
  Sender: FDA-Public Use
  Company Number: US-AMGEN-TCS406764

PATIENT

DRUGS (2)
  1. ENBREL [Suspect]
     Indication: RHEUMATOID ARTHRITIS
     Dosage: 25 MG, 2 TIMES/WK
     Route: 058
  2. METHOTREXATE [Concomitant]
     Dosage: 12.5 MG, QWK
     Route: 048

REACTIONS (11)
  - BURNING SENSATION [None]
  - CONJUNCTIVITIS [None]
  - EAR INFECTION [None]
  - HERPES VIRUS INFECTION [None]
  - INFECTION [None]
  - INJECTION SITE ANAESTHESIA [None]
  - INJECTION SITE HAEMATOMA [None]
  - INJECTION SITE PAIN [None]
  - INJECTION SITE PARAESTHESIA [None]
  - PAIN [None]
  - RESPIRATORY TRACT INFECTION [None]
